FAERS Safety Report 16160580 (Version 2)
Quarter: 2022Q4

REPORT INFORMATION
  Report Type: Other
  Country: CA (occurrence: None)
  Receive Date: 20190405
  Receipt Date: 20221013
  Transmission Date: 20230113
  Serious: Yes (Other)
  Sender: FDA-Public Use
  Company Number: CA-ROCHE-2296138

PATIENT
  Sex: Male

DRUGS (8)
  1. RITUXAN [Suspect]
     Active Substance: RITUXIMAB
     Indication: Pemphigus
     Dosage: MOREDOSAGEINFO : DAY 1,15
     Route: 042
     Dates: start: 20190408
  2. CELLCEPT [Suspect]
     Active Substance: MYCOPHENOLATE MOFETIL
     Indication: Pemphigus
     Route: 048
  3. RISEDRONATE SODIUM [Concomitant]
     Active Substance: RISEDRONATE SODIUM
  4. VITAMIN D3 [Concomitant]
     Active Substance: CHOLECALCIFEROL
  5. TENOFOVIR [Concomitant]
     Active Substance: TENOFOVIR
  6. BENADRYL [Concomitant]
     Active Substance: DIPHENHYDRAMINE HYDROCHLORIDE
     Dosage: DRUG INDICATION: PREMEDICATION
     Dates: start: 20190408
  7. SOLU-MEDROL [Concomitant]
     Active Substance: METHYLPREDNISOLONE SODIUM SUCCINATE
     Route: 042
     Dates: start: 20190408, end: 20190408
  8. TYLENOL [Concomitant]
     Active Substance: ACETAMINOPHEN
     Dosage: DRUG INDICATION: PREMEDICATION
     Dates: start: 20190408

REACTIONS (1)
  - Pemphigus [Unknown]
